FAERS Safety Report 25511639 (Version 1)
Quarter: 2025Q3

REPORT INFORMATION
  Report Type: Spontaneous
  Country: US (occurrence: US)
  Receive Date: 20250703
  Receipt Date: 20250703
  Transmission Date: 20251020
  Serious: No
  Sender: RADIUS PHARM
  Company Number: US-RADIUS HEALTH INC.-2024US007206

PATIENT
  Age: 82 Year
  Sex: Female

DRUGS (2)
  1. TYMLOS [Suspect]
     Active Substance: ABALOPARATIDE
     Indication: Product used for unknown indication
     Route: 065
  2. TYMLOS [Suspect]
     Active Substance: ABALOPARATIDE
     Route: 065

REACTIONS (12)
  - Muscle spasms [Unknown]
  - Heart rate irregular [Unknown]
  - Intentional dose omission [Unknown]
  - Cardiac flutter [Unknown]
  - Arrhythmia [Unknown]
  - Supraventricular tachycardia [Unknown]
  - Blood sodium decreased [Unknown]
  - Abdominal distension [Unknown]
  - Fatigue [Recovered/Resolved]
  - Intentional product misuse [Unknown]
  - Heart rate increased [Unknown]
  - Fracture [Unknown]

NARRATIVE: CASE EVENT DATE: 20241001
